FAERS Safety Report 18531656 (Version 1)
Quarter: 2020Q4

REPORT INFORMATION
  Report Type: Not Available
  Country: US (occurrence: US)
  Receive Date: 20201123
  Receipt Date: 20201123
  Transmission Date: 20210114
  Serious: No
  Sender: FDA-Public Use
  Company Number: US-NEUROCRINE BIOSCIENCES INC.-2020NBI04150

PATIENT
  Age: 68 Year
  Sex: Female

DRUGS (2)
  1. INGREZZA [Suspect]
     Active Substance: VALBENAZINE
     Indication: TARDIVE DYSKINESIA
     Route: 048
     Dates: start: 20201030, end: 20201105
  2. INGREZZA [Suspect]
     Active Substance: VALBENAZINE
     Route: 048
     Dates: start: 20201106, end: 20201108

REACTIONS (5)
  - Balance disorder [Unknown]
  - Drooling [Unknown]
  - Fatigue [Unknown]
  - Sluggishness [Unknown]
  - Bradykinesia [Unknown]

NARRATIVE: CASE EVENT DATE: 2020
